FAERS Safety Report 5070311-8 (Version None)
Quarter: 2006Q3

REPORT INFORMATION
  Report Type: 
  Country: None (occurrence: None)
  Receive Date: 20060802
  Receipt Date: 20060112
  Transmission Date: 20061208
  Serious: Yes (Hospitalization)
  Sender: FDA-Public Use
  Company Number: OMPQ-NO-0601S-0006

PATIENT
  Age: 53 Year
  Sex: Male

DRUGS (3)
  1. OMNIPAQUE 140 [Suspect]
     Indication: DRUG USE FOR UNKNOWN INDICATION
     Dosage: (SINGLE DOSE) I.V.
     Route: 042
     Dates: start: 20050906, end: 20050906
  2. SALMETEROL XINAFOATE (SEREVENT) DISKUS [Concomitant]
  3. FLUTICASONE PROPIONATE (FLIXOTIDE DISKUS) [Concomitant]

REACTIONS (1)
  - HEPATITIS CHOLESTATIC [None]
